FAERS Safety Report 6726726-2 (Version None)
Quarter: 2010Q2

REPORT INFORMATION
  Report Type: 
  Country: None (occurrence: None)
  Receive Date: 20100514
  Receipt Date: 20100506
  Transmission Date: 20101027
  Serious: Yes (Hospitalization)
  Sender: FDA-Public Use
  Company Number: JP-ROCHE-659927

PATIENT
  Sex: Female

DRUGS (26)
  1. TOCILIZUMAB [Suspect]
     Indication: RHEUMATOID ARTHRITIS
     Route: 042
     Dates: start: 20090824, end: 20090824
  2. TOCILIZUMAB [Suspect]
     Route: 042
     Dates: start: 20090930, end: 20090930
  3. TOCILIZUMAB [Suspect]
     Route: 042
     Dates: start: 20091026, end: 20091026
  4. TOCILIZUMAB [Suspect]
     Route: 042
     Dates: start: 20091130, end: 20091130
  5. TOCILIZUMAB [Suspect]
     Route: 042
     Dates: start: 20091228, end: 20091228
  6. AZULFIDINE [Concomitant]
     Dosage: DOSE FORM: ENTERIC COATING DRUG
     Route: 048
     Dates: end: 20091002
  7. PREDNISOLONE [Concomitant]
     Route: 048
  8. TAKEPRON [Concomitant]
     Route: 048
  9. INNOLET 30R [Concomitant]
     Route: 058
  10. KINEDAK [Concomitant]
     Route: 048
  11. CINAL [Concomitant]
     Route: 048
  12. MEXITIL [Concomitant]
     Route: 048
  13. ASPIRIN [Concomitant]
     Dosage: DOSE FORM: ENTERIC
     Route: 048
  14. LAXOBERON [Concomitant]
     Dosage: DOSE FORM: ORAL FORMULATION (NOT OTHERWISE SPECIFIED). TAKEN AS NEEDED
     Route: 048
  15. PURSENNID [Concomitant]
     Route: 048
  16. CATLEP [Concomitant]
     Dosage: DOSE FORM: TAPE. TAKEN AS NEEDED
     Route: 061
  17. MICARDIS [Concomitant]
     Route: 048
  18. LIPITOR [Concomitant]
     Route: 048
  19. AMLODIN [Concomitant]
     Route: 048
  20. EPOGIN S [Concomitant]
     Dosage: DOSE: 12000 UT.
     Route: 058
  21. LASIX [Concomitant]
     Dosage: DOSE FORM: ORAL FORMULATION (NOT OTHERWISE SPECIFIED)
     Route: 048
     Dates: start: 20090824
  22. DOXAZOSIN MESYLATE [Concomitant]
     Route: 048
     Dates: start: 20090824, end: 20090925
  23. MUCODYNE [Concomitant]
     Route: 048
  24. CLARITH [Concomitant]
     Route: 048
  25. KENACORT [Concomitant]
     Route: 014
     Dates: start: 20090903, end: 20090903
  26. ACECOL [Concomitant]
     Route: 048
     Dates: start: 20091228

REACTIONS (3)
  - PLEURISY [None]
  - RASH [None]
  - SINUSITIS [None]
